FAERS Safety Report 22208449 (Version 1)
Quarter: 2023Q2

REPORT INFORMATION
  Report Type: Spontaneous
  Country: US (occurrence: None)
  Receive Date: 20230413
  Receipt Date: 20230413
  Transmission Date: 20230722
  Serious: No
  Sender: FDA-Public Use
  Company Number: None

PATIENT
  Age: 61 Year
  Sex: Female
  Weight: 135 kg

DRUGS (5)
  1. GAMMAGARD [Suspect]
     Active Substance: HUMAN IMMUNOGLOBULIN G
     Indication: Guillain-Barre syndrome
     Dosage: 35 G  GRAM INTRAVENOUS
     Route: 042
  2. GAMMAGARD [Suspect]
     Active Substance: HUMAN IMMUNOGLOBULIN G
     Indication: Guillain-Barre syndrome
     Dosage: 35 G  GRAMS INTRAVENOUS
     Route: 042
  3. SOLU-MEDROL 40MG IV [Concomitant]
  4. DIPHENHYDRAMINE 25MG CAP [Concomitant]
  5. ACETAMINOPHEN 500MG TAB [Concomitant]

REACTIONS (3)
  - Post procedural complication [None]
  - Headache [None]
  - Sleep disorder [None]

NARRATIVE: CASE EVENT DATE: 20230406
